FAERS Safety Report 24524606 (Version 2)
Quarter: 2025Q3

REPORT INFORMATION
  Report Type: Spontaneous
  Country: US (occurrence: US)
  Receive Date: 20241019
  Receipt Date: 20250816
  Transmission Date: 20251020
  Serious: No
  Sender: ALEXION PHARMACEUTICALS
  Company Number: US-AstraZeneca-CH-00708711AP

PATIENT
  Sex: Male

DRUGS (1)
  1. BREZTRI [Suspect]
     Active Substance: BUDESONIDE\FORMOTEROL\GLYCOPYRROLATE

REACTIONS (10)
  - Incorrect dose administered by device [Unknown]
  - Product dose omission issue [Unknown]
  - Overdose [Unknown]
  - Device use issue [Unknown]
  - Panic reaction [Unknown]
  - Colonoscopy [Unknown]
  - Dyspnoea [Unknown]
  - Device defective [Unknown]
  - Device colour issue [Unknown]
  - Product communication issue [Unknown]
